FAERS Safety Report 4640871-7 (Version None)
Quarter: 2005Q2

REPORT INFORMATION
  Report Type: 
  Country: None (occurrence: None)
  Receive Date: 20050324
  Receipt Date: 20041214
  Transmission Date: 20051028
  Serious: No
  Sender: FDA-Public Use
  Company Number: 211165

PATIENT
  Age: 65 Year
  Sex: Female

DRUGS (2)
  1. AVASTIN [Suspect]
     Indication: FALLOPIAN TUBE CANCER
     Dosage: 10 MG/KG, QD, INTRAVENOUS
     Route: 042
     Dates: start: 20041206
  2. CYTOXAN [Concomitant]

REACTIONS (1)
  - VOMITING [None]
